FAERS Safety Report 8912649 (Version 1)
Quarter: 2012Q4

REPORT INFORMATION
  Report Type: 
  Country: DE (occurrence: US)
  Receive Date: 20121116
  Receipt Date: 20121116
  Transmission Date: 20130627
  Serious: Yes (Other)
  Sender: FDA-Public Use
  Company Number: US-BRISTOL-MYERS SQUIBB COMPANY-17132903

PATIENT
  Sex: Female
  Weight: 2.83 kg

DRUGS (1)
  1. METFORMIN HCL [Suspect]
     Route: 064

REACTIONS (2)
  - Hyperbilirubinaemia [Unknown]
  - Hypoglycaemia [Unknown]
